FAERS Safety Report 14990064 (Version 1)
Quarter: 2018Q2

REPORT INFORMATION
  Report Type: Spontaneous
  Country: US (occurrence: US)
  Receive Date: 20180520
  Receipt Date: 20180520
  Transmission Date: 20180711
  Serious: Yes (Other)
  Sender: FDA-Public Use
  Company Number: None

PATIENT
  Age: 43 Year
  Sex: Female
  Weight: 69.75 kg

DRUGS (1)
  1. ADDERALL [Suspect]
     Active Substance: AMPHETAMINE ASPARTATE\AMPHETAMINE SULFATE\DEXTROAMPHETAMINE SACCHARATE\DEXTROAMPHETAMINE SULFATE
     Indication: ATTENTION DEFICIT/HYPERACTIVITY DISORDER
     Dosage: ?          QUANTITY:90 DF DOSAGE FORM;?
     Route: 048

REACTIONS (7)
  - Depression [None]
  - Mood swings [None]
  - Product substitution issue [None]
  - Product quality issue [None]
  - Feeling abnormal [None]
  - Drug ineffective [None]
  - Manufacturing materials issue [None]

NARRATIVE: CASE EVENT DATE: 20180225
